FAERS Safety Report 4866853-8 (Version None)
Quarter: 2005Q4

REPORT INFORMATION
  Report Type: 
  Country: None (occurrence: None)
  Receive Date: 20051222
  Receipt Date: 20051212
  Transmission Date: 20060501
  Serious: Yes (Other)
  Sender: FDA-Public Use
  Company Number: HQWYE993814DEC05

PATIENT
  Age: 73 Year
  Sex: Female

DRUGS (9)
  1. RHINADVIL (IBUPROFEN/PSEUDOEPHEDRINE HYDROCHLORIDE, TABLET) [Suspect]
     Indication: NASOPHARYNGITIS
     Dosage: 1 TABLET 1X PER 1 DAY ORAL
     Route: 048
     Dates: start: 20051030, end: 20051030
  2. RHINADVIL (IBUPROFEN/PSEUDOEPHEDRINE HYDROCHLORIDE, TABLET) [Suspect]
     Indication: RHINITIS
     Dosage: 1 TABLET 1X PER 1 DAY ORAL
     Route: 048
     Dates: start: 20051030, end: 20051030
  3. RHINADVIL (IBUPROFEN/PSEUDOEPHEDRINE HYDROCHLORIDE, TABLET) [Suspect]
     Indication: NASOPHARYNGITIS
     Dosage: 1 TABLET 1X PER 1 DAY ORAL
     Route: 048
     Dates: start: 20051101, end: 20051101
  4. RHINADVIL (IBUPROFEN/PSEUDOEPHEDRINE HYDROCHLORIDE, TABLET) [Suspect]
     Indication: RHINITIS
     Dosage: 1 TABLET 1X PER 1 DAY ORAL
     Route: 048
     Dates: start: 20051101, end: 20051101
  5. ANASTROZOLE (ANASTROZOLE) [Suspect]
     Indication: BREAST CANCER
  6. COTAREG (HYDROCHLOROTHIAZIDE/VALSARTAN) [Suspect]
     Indication: HYPERTENSION
  7. DISCOTRINE (GLYCERYL TRINITRATE, DISC) [Suspect]
     Indication: CARDIAC DISORDER
  8. LEVOTHYROXINE SODIUM [Suspect]
     Indication: HYPOTHYROIDISM
  9. VASTAREL (TRIMETAZIDINE HYDROCHLORIDE) [Suspect]

REACTIONS (10)
  - BLOOD PRESSURE DECREASED [None]
  - BRONCHITIS [None]
  - EMBOLISM [None]
  - GENERALISED ERYTHEMA [None]
  - HEART RATE INCREASED [None]
  - MALAISE [None]
  - OEDEMA [None]
  - PAIN IN EXTREMITY [None]
  - PHLEBITIS [None]
  - WEIGHT INCREASED [None]
